FAERS Safety Report 9773284 (Version 2)
Quarter: 2014Q1

REPORT INFORMATION
  Report Type: Spontaneous
  Country: JP (occurrence: JP)
  Receive Date: 20131219
  Receipt Date: 20140219
  Transmission Date: 20141002
  Serious: Yes (Hospitalization)
  Sender: FDA-Public Use
  Company Number: JP-GLAXOSMITHKLINE-B0954354A

PATIENT
  Age: 52 Year
  Sex: Male

DRUGS (4)
  1. LAMICTAL [Suspect]
     Indication: BIPOLAR DISORDER
     Dosage: 25MG PER DAY
     Route: 048
     Dates: start: 20130806, end: 20130823
  2. LIMAS [Concomitant]
     Route: 048
  3. ABILIFY [Concomitant]
     Route: 048
  4. AMOBAN [Concomitant]
     Route: 048

REACTIONS (3)
  - Drug-induced liver injury [Recovered/Resolved]
  - Hepatitis fulminant [Recovered/Resolved]
  - Rash generalised [Recovered/Resolved]
